FAERS Safety Report 5578271-8 (Version None)
Quarter: 2007Q4

REPORT INFORMATION
  Report Type: 
  Country: None (occurrence: None)
  Receive Date: 20071231
  Receipt Date: 20071219
  Transmission Date: 20080405
  Serious: Yes (Other)
  Sender: FDA-Public Use
  Company Number: US-PFIZER INC-2007107330

PATIENT
  Sex: Female
  Weight: 59.4 kg

DRUGS (3)
  1. LYRICA [Suspect]
     Indication: FIBROMYALGIA
  2. ACIPHEX [Concomitant]
  3. ZANTAC [Concomitant]

REACTIONS (5)
  - ADVERSE DRUG REACTION [None]
  - HANGOVER [None]
  - LOSS OF CONSCIOUSNESS [None]
  - UNEVALUABLE EVENT [None]
  - UNRESPONSIVE TO STIMULI [None]
